FAERS Safety Report 20022504 (Version 1)
Quarter: 2021Q4

REPORT INFORMATION
  Report Type: Spontaneous
  Country: CA (occurrence: None)
  Receive Date: 20211102
  Receipt Date: 20211102
  Transmission Date: 20220303
  Serious: Yes (Hospitalization)
  Sender: FDA-Public Use
  Company Number: CA-Covis Pharma GmbH-2021COV24486

PATIENT
  Sex: Male

DRUGS (2)
  1. RILUTEK [Suspect]
     Active Substance: RILUZOLE
     Indication: Product used for unknown indication
     Dosage: 50 MILLIGRAM TWICE DAILY VIA ORAL ROUTE
     Route: 048
  2. EDARAVONE [Suspect]
     Active Substance: EDARAVONE
     Indication: Amyotrophic lateral sclerosis

REACTIONS (1)
  - Accidental overdose [Unknown]
